FAERS Safety Report 5499834-4 (Version None)
Quarter: 2007Q4

REPORT INFORMATION
  Report Type: 
  Country: None (occurrence: None)
  Receive Date: 20071026
  Receipt Date: 20071018
  Transmission Date: 20080405
  Serious: Yes (Death, Other)
  Sender: FDA-Public Use
  Company Number: US-ABBOTT-07P-163-0421188-00

PATIENT
  Age: 4 Year
  Sex: Female

DRUGS (4)
  1. VALPROATE SODIUM [Suspect]
     Indication: BIPOLAR DISORDER
  2. ACETAMINOPHEN/DEXTROMETHORPHAN HBR/CHLORPHENIRAMINE MALEATE [Suspect]
     Indication: NASOPHARYNGITIS
     Route: 065
     Dates: start: 20061212
  3. QUETIAPINE FUMARATE [Suspect]
     Indication: DRUG USE FOR UNKNOWN INDICATION
  4. CLONIDINE [Suspect]
     Indication: BIPOLAR DISORDER

REACTIONS (3)
  - CARDIAC DISORDER [None]
  - LUNG DISORDER [None]
  - MULTIPLE DRUG OVERDOSE [None]
